FAERS Safety Report 4868880-3 (Version None)
Quarter: 2005Q4

REPORT INFORMATION
  Report Type: 
  Country: None (occurrence: None)
  Receive Date: 20051229
  Receipt Date: 20050930
  Transmission Date: 20060501
  Serious: Yes (Hospitalization, Disabling)
  Sender: FDA-Public Use
  Company Number: US-MERCK-0510USA01997

PATIENT
  Age: 75 Year
  Sex: Male
  Weight: 97 kg

DRUGS (3)
  1. VIOXX [Suspect]
     Indication: OSTEOARTHRITIS
     Route: 048
     Dates: start: 19991001, end: 20040501
  2. LOTENSIN [Concomitant]
     Indication: HYPERTENSION
     Route: 065
     Dates: start: 19950101
  3. BENAZEPRIL HYDROCHLORIDE [Concomitant]
     Indication: HYPERTENSION
     Route: 065
     Dates: start: 19950101, end: 20040101

REACTIONS (20)
  - ABDOMINAL PAIN UPPER [None]
  - ADENOMA BENIGN [None]
  - ARTERIOSCLEROSIS [None]
  - ARTERIOSCLEROSIS CORONARY ARTERY [None]
  - ARTHROPATHY [None]
  - ATRIAL FIBRILLATION [None]
  - BLOOD PRESSURE INCREASED [None]
  - CARDIAC DISORDER [None]
  - CARDIAC STRESS TEST [None]
  - CHEST PAIN [None]
  - COUGH [None]
  - HEADACHE [None]
  - HIP ARTHROPLASTY [None]
  - INTESTINAL FUNCTIONAL DISORDER [None]
  - MYOCARDIAL INFARCTION [None]
  - OEDEMA PERIPHERAL [None]
  - RASH [None]
  - RENAL FAILURE [None]
  - ROTATOR CUFF SYNDROME [None]
  - SINUS CONGESTION [None]
